FAERS Safety Report 18461236 (Version 3)
Quarter: 2021Q1

REPORT INFORMATION
  Report Type: Spontaneous
  Country: IT (occurrence: IT)
  Receive Date: 20201104
  Receipt Date: 20210113
  Transmission Date: 20210419
  Serious: Yes (Death)
  Sender: FDA-Public Use
  Company Number: IT-ROCHE-2706998

PATIENT
  Age: 63 Year
  Sex: Female
  Weight: 650 kg

DRUGS (7)
  1. BRIVIACT [Suspect]
     Active Substance: BRIVARACETAM
     Indication: HERPES ZOSTER
     Dosage: ON 18/FEB/2019, MOST RECENT DOSE.
     Route: 048
     Dates: start: 20190212
  2. XELODA [Suspect]
     Active Substance: CAPECITABINE
     Indication: BREAST CANCER STAGE IV
     Dosage: ON 18/FEB/2019, MOST RECENT DOSE.
     Route: 048
     Dates: start: 20161004
  3. EUTIROX [Concomitant]
     Active Substance: LEVOTHYROXINE SODIUM
     Indication: THYROIDECTOMY
     Route: 048
     Dates: start: 20070301
  4. BENERVA [Concomitant]
     Active Substance: THIAMINE HYDROCHLORIDE
     Indication: HERPES ZOSTER
     Route: 048
     Dates: start: 20190212, end: 20190218
  5. NAVELBINE [Concomitant]
     Active Substance: VINORELBINE TARTRATE
     Indication: BREAST CANCER STAGE IV
     Route: 048
     Dates: start: 20161004, end: 20190219
  6. PARACETAMOL [Concomitant]
     Active Substance: ACETAMINOPHEN
     Indication: PAIN
     Route: 048
     Dates: start: 20190212, end: 20190218
  7. FUCIDIN [Concomitant]
     Active Substance: FUSIDATE SODIUM
     Indication: HERPES ZOSTER
     Dates: start: 20190212, end: 20190218

REACTIONS (1)
  - Drug interaction [Fatal]

NARRATIVE: CASE EVENT DATE: 20190218
